FAERS Safety Report 14964136 (Version 1)
Quarter: 2018Q2

REPORT INFORMATION
  Report Type: Spontaneous
  Country: JP (occurrence: JP)
  Receive Date: 20180601
  Receipt Date: 20180601
  Transmission Date: 20180711
  Serious: Yes (Other)
  Sender: FDA-Public Use
  Company Number: PHHY2014JP118772

PATIENT
  Age: 80 Year
  Sex: Female

DRUGS (2)
  1. EXELON PATCH [Suspect]
     Active Substance: RIVASTIGMINE
     Route: 062
  2. EXELON PATCH [Suspect]
     Active Substance: RIVASTIGMINE
     Indication: DEMENTIA
     Dosage: UNK
     Route: 062
     Dates: start: 20140908

REACTIONS (3)
  - Fall [Recovering/Resolving]
  - Cerebral infarction [Unknown]
  - Dizziness [Unknown]

NARRATIVE: CASE EVENT DATE: 20140908
